FAERS Safety Report 25562048 (Version 7)
Quarter: 2025Q4

REPORT INFORMATION
  Report Type: Spontaneous
  Country: JP (occurrence: JP)
  Receive Date: 20250716
  Receipt Date: 20251210
  Transmission Date: 20260118
  Serious: Yes (Hospitalization, Other)
  Sender: ASTELLAS
  Company Number: JP-ASTELLAS-2025-AER-037067

PATIENT
  Age: 69 Year
  Sex: Female
  Weight: 52 kg

DRUGS (12)
  1. VYLOY [Suspect]
     Active Substance: ZOLBETUXIMAB-CLZB
     Indication: Gastric cancer
     Dosage: DAILY DOSING FREQUENCY: 1 DOSE
     Route: 042
     Dates: start: 20250611, end: 20250611
  2. VYLOY [Suspect]
     Active Substance: ZOLBETUXIMAB-CLZB
     Dosage: DAILY DOSE: 900MG, DAILY DOSING FREQUENCY: 1 DOSE
     Route: 042
     Dates: start: 20250702
  3. CAPECITABINE [Suspect]
     Active Substance: CAPECITABINE
     Indication: Gastric cancer
     Dosage: FULL DOSE
     Route: 048
     Dates: start: 20250611, end: 20250625
  4. CAPECITABINE [Suspect]
     Active Substance: CAPECITABINE
     Dosage: FULL DOSE
     Route: 048
     Dates: start: 20250702, end: 20250710
  5. OXALIPLATIN [Suspect]
     Active Substance: OXALIPLATIN
     Indication: Gastric cancer
     Dosage: FULL DOSE
     Route: 042
     Dates: start: 20250611
  6. OXALIPLATIN [Suspect]
     Active Substance: OXALIPLATIN
     Dosage: FULL DOSE
     Route: 042
     Dates: start: 20250702
  7. Olopatadine tablet [Concomitant]
     Indication: Rhinitis allergic
     Route: 048
     Dates: start: 20170406
  8. Olopatadine tablet [Concomitant]
     Indication: Conjunctivitis allergic
  9. Takecab tablet [Concomitant]
     Indication: Gastric cancer
     Route: 048
     Dates: start: 20250408
  10. Sennoside tablet [Concomitant]
     Indication: Constipation
     Route: 048
     Dates: start: 20250610, end: 20250703
  11. AMINO ACIDS\DEXTROSE\ELECTROLYTES NOS\VITAMINS [Concomitant]
     Active Substance: AMINO ACIDS\DEXTROSE\ELECTROLYTES NOS\VITAMINS
     Indication: Cytomegalovirus enterocolitis
     Route: 065
     Dates: start: 20250710
  12. Rinaceto D [Concomitant]
     Indication: Cytomegalovirus enterocolitis
     Route: 065
     Dates: start: 20250710

REACTIONS (5)
  - Cytomegalovirus enterocolitis [Recovered/Resolved]
  - Decreased appetite [Recovered/Resolved]
  - Palmar-plantar erythrodysaesthesia syndrome [Recovered/Resolved]
  - Aortic thrombosis [Recovering/Resolving]
  - Nausea [Recovered/Resolved]

NARRATIVE: CASE EVENT DATE: 20250701
